FAERS Safety Report 19483512 (Version 9)
Quarter: 2023Q1

REPORT INFORMATION
  Report Type: Spontaneous
  Country: US (occurrence: US)
  Receive Date: 20210701
  Receipt Date: 20230314
  Transmission Date: 20230417
  Serious: Yes (Hospitalization, Other)
  Sender: FDA-Public Use
  Company Number: US-PFIZER INC-2021748397

PATIENT
  Age: 46 Year
  Sex: Male

DRUGS (5)
  1. INLYTA [Suspect]
     Active Substance: AXITINIB
     Dosage: 5 MG
     Dates: start: 20210601
  2. INLYTA [Suspect]
     Active Substance: AXITINIB
     Dosage: 5 MG
     Dates: start: 20210615
  3. INLYTA [Suspect]
     Active Substance: AXITINIB
     Dosage: 1 DF, 1X/DAY
  4. INLYTA [Suspect]
     Active Substance: AXITINIB
     Dosage: 2.5 MG (TAKING HALF DOSE)
  5. INLYTA [Suspect]
     Active Substance: AXITINIB
     Dosage: UNK, 2X/DAY (TAKING IT TWICE A DAY NOW)

REACTIONS (19)
  - Seizure [Unknown]
  - Anaemia [Unknown]
  - Pyrexia [Unknown]
  - Nausea [Unknown]
  - Fatigue [Unknown]
  - Full blood count abnormal [Unknown]
  - Renal cancer stage IV [Unknown]
  - Off label use [Unknown]
  - Intentional product misuse [Unknown]
  - Peripheral swelling [Unknown]
  - Hypersensitivity [Recovered/Resolved]
  - Diarrhoea [Recovered/Resolved]
  - Nasopharyngitis [Recovered/Resolved]
  - Nasal congestion [Unknown]
  - Rhinorrhoea [Unknown]
  - Hypersensitivity [Unknown]
  - Rash [Unknown]
  - Rash [Unknown]
  - Scan abnormal [Unknown]

NARRATIVE: CASE EVENT DATE: 20210101
